FAERS Safety Report 8133315-4 (Version None)
Quarter: 2012Q1

REPORT INFORMATION
  Report Type: 
  Country: None (occurrence: None)
  Receive Date: 20120213
  Receipt Date: 20120206
  Transmission Date: 20120608
  Serious: Yes (Death)
  Sender: FDA-Public Use
  Company Number: BE-BRISTOL-MYERS SQUIBB COMPANY-16389843

PATIENT
  Age: 64 Year
  Sex: Male

DRUGS (1)
  1. LYSODREN [Suspect]

REACTIONS (2)
  - RENAL FAILURE [None]
  - NEOPLASM PROGRESSION [None]
